FAERS Safety Report 6575380-1 (Version None)
Quarter: 2010Q1

REPORT INFORMATION
  Report Type: 
  Country: None (occurrence: None)
  Receive Date: 20100209
  Receipt Date: 20100203
  Transmission Date: 20100710
  Serious: Yes (Death)
  Sender: FDA-Public Use
  Company Number: US-ROCHE-683846

PATIENT
  Sex: Female

DRUGS (7)
  1. AVASTIN [Suspect]
     Route: 042
     Dates: start: 20080301
  2. AVASTIN [Suspect]
     Route: 042
     Dates: start: 20080401, end: 20090701
  3. OXALIPLATIN [Suspect]
     Route: 042
     Dates: start: 20090219, end: 20090701
  4. 5-FU [Concomitant]
     Dates: start: 20090219
  5. TEMODAR [Concomitant]
  6. DECADRON [Concomitant]
  7. ZOFRAN [Concomitant]

REACTIONS (1)
  - DISEASE PROGRESSION [None]
